FAERS Safety Report 16921136 (Version 5)
Quarter: 2020Q1

REPORT INFORMATION
  Report Type: Spontaneous
  Country: US (occurrence: US)
  Receive Date: 20191015
  Receipt Date: 20200113
  Transmission Date: 20200409
  Serious: Yes (Hospitalization, Other)
  Sender: FDA-Public Use
  Company Number: US-PFIZER INC-2018221003

PATIENT
  Age: 71 Year
  Sex: Female

DRUGS (1)
  1. XELJANZ [Suspect]
     Active Substance: TOFACITINIB CITRATE
     Indication: ARTHRITIS
     Dosage: 5 MG, 1X/DAY
     Route: 048

REACTIONS (8)
  - Hypoacusis [Unknown]
  - Bronchitis [Unknown]
  - Vomiting [Unknown]
  - Product dose omission [Unknown]
  - Dyspnoea [Unknown]
  - Intentional product use issue [Unknown]
  - Malaise [Unknown]
  - Swelling [Unknown]

NARRATIVE: CASE EVENT DATE: 20200108
